FAERS Safety Report 9448479 (Version 2)
Quarter: 2013Q3

REPORT INFORMATION
  Report Type: Spontaneous
  Country: JP (occurrence: JP)
  Receive Date: 20130808
  Receipt Date: 20130813
  Transmission Date: 20140515
  Serious: Yes (Death, Hospitalization, Other)
  Sender: FDA-Public Use
  Company Number: JP-PFIZER INC-2013210963

PATIENT
  Age: 78 Year
  Sex: Male

DRUGS (10)
  1. ANCARON [Suspect]
     Indication: VENTRICULAR TACHYCARDIA
     Dosage: 100 MG, TWICE A DAY
     Route: 048
     Dates: start: 19980110, end: 20130420
  2. ANCARON [Suspect]
     Dosage: 400 MG, DAILY
     Route: 048
     Dates: start: 20130421, end: 20130625
  3. ANCARON [Suspect]
     Dosage: 200 MG, DAILY
     Route: 048
     Dates: start: 20130625, end: 20130711
  4. BAYASPIRIN [Concomitant]
     Dosage: UNK
     Dates: start: 199801, end: 20130711
  5. LASIX [Concomitant]
     Dosage: UNK
     Dates: start: 199801, end: 20130711
  6. ALDACTONE-A [Concomitant]
     Dosage: UNK
     Dates: start: 199801, end: 20130711
  7. BLOPRESS [Concomitant]
     Dosage: UNK
     Dates: start: 199801, end: 20130711
  8. ARTIST [Concomitant]
     Dosage: UNK
     Dates: start: 199801, end: 20130711
  9. NORMONAL [Concomitant]
     Dosage: UNK
     Dates: start: 199801, end: 20130711
  10. WARFARIN [Concomitant]
     Dosage: UNK
     Dates: start: 200902, end: 20130711

REACTIONS (6)
  - Interstitial lung disease [Fatal]
  - Respiratory failure [Fatal]
  - Dehydration [Unknown]
  - Psychiatric symptom [Unknown]
  - Vena cava thrombosis [Unknown]
  - Drug ineffective [Unknown]
